FAERS Safety Report 8292398-1 (Version None)
Quarter: 2012Q2

REPORT INFORMATION
  Report Type: 
  Country: None (occurrence: None)
  Receive Date: 20120417
  Receipt Date: 20120221
  Transmission Date: 20120825
  Serious: No
  Sender: FDA-Public Use
  Company Number: US-BAUSCH-2012BL001286

PATIENT
  Age: 64 Year
  Sex: Female

DRUGS (1)
  1. LATANOPROST [Suspect]
     Indication: GLAUCOMA
     Route: 047
     Dates: start: 20120101

REACTIONS (7)
  - ARTHRALGIA [None]
  - EYE PAIN [None]
  - DRY THROAT [None]
  - DRUG HYPERSENSITIVITY [None]
  - OCULAR HYPERAEMIA [None]
  - CONDITION AGGRAVATED [None]
  - INSOMNIA [None]
